FAERS Safety Report 23383162 (Version 1)
Quarter: 2024Q1

REPORT INFORMATION
  Report Type: Spontaneous
  Country: US (occurrence: US)
  Receive Date: 20240109
  Receipt Date: 20240109
  Transmission Date: 20240410
  Serious: No
  Sender: FDA-Public Use
  Company Number: US-MELINTA THERAPEUTICS, LLC-US-MLNT-23-00515

PATIENT

DRUGS (2)
  1. REZZAYO [Suspect]
     Active Substance: REZAFUNGIN
     Indication: Candida infection
     Dosage: UNK
     Route: 042
     Dates: start: 202309, end: 202309
  2. MICAFUNGIN [Concomitant]
     Active Substance: MICAFUNGIN SODIUM
     Indication: Candida infection
     Dosage: UNK

REACTIONS (2)
  - Maternal exposure during pregnancy [Unknown]
  - No adverse event [Unknown]
